FAERS Safety Report 20374534 (Version 1)
Quarter: 2022Q1

REPORT INFORMATION
  Report Type: Report from Study
  Country: US (occurrence: US)
  Receive Date: 20220125
  Receipt Date: 20220125
  Transmission Date: 20220423
  Serious: Yes (Other)
  Sender: FDA-Public Use
  Company Number: US-GW PHARMA-202201USGW00290

PATIENT

DRUGS (1)
  1. EPIDIOLEX [Suspect]
     Active Substance: CANNABIDIOL
     Indication: Product used for unknown indication
     Dosage: 9.96 MG/KG/DAY, 370 MILLIGRAM, BID
     Route: 048

REACTIONS (2)
  - Depression [Unknown]
  - Malaise [Unknown]

NARRATIVE: CASE EVENT DATE: 20220119
